FAERS Safety Report 8440512-7 (Version None)
Quarter: 2012Q2

REPORT INFORMATION
  Report Type: 
  Country: None (occurrence: None)
  Receive Date: 20120615
  Receipt Date: 20120605
  Transmission Date: 20120825
  Serious: Yes (Hospitalization, Other)
  Sender: FDA-Public Use
  Company Number: US-ABBOTT-12P-163-0932404-00

PATIENT
  Age: 40 Year
  Sex: Female

DRUGS (17)
  1. DILAUDID [Concomitant]
     Indication: PAIN
  2. TRAZODONE HCL [Concomitant]
     Indication: PRODUCT USED FOR UNKNOWN INDICATION
     Dosage: 300MG AT BEDTIME
  3. HUMIRA [Suspect]
     Indication: CROHN'S DISEASE
     Dates: start: 20120229, end: 20120426
  4. NEXIUM [Concomitant]
     Indication: PRODUCT USED FOR UNKNOWN INDICATION
     Dosage: 40 MG DAILY
  5. BENTYL [Concomitant]
     Indication: PRODUCT USED FOR UNKNOWN INDICATION
     Dosage: 10MG 2 PILLS 4 TIMES A DAY AS NEEDED
  6. ATIVAN [Concomitant]
     Indication: NAUSEA
  7. ATIVAN [Concomitant]
     Indication: CROHN'S DISEASE
  8. ZOFRAN [Concomitant]
     Indication: PRODUCT USED FOR UNKNOWN INDICATION
     Dosage: 1-3 TIMES A DAY
  9. ENABLEX [Concomitant]
     Indication: PRODUCT USED FOR UNKNOWN INDICATION
     Dosage: 7.5MG DAILY
  10. ATIVAN [Concomitant]
     Indication: ANXIOLYTIC THERAPY
     Dosage: 2MG THREE TIMES DAILY, AS NEEDED
  11. ATIVAN [Concomitant]
     Indication: VOMITING
  12. SYNTHROID [Concomitant]
     Indication: PRODUCT USED FOR UNKNOWN INDICATION
     Dosage: 100 MG DAILY
  13. MAXALT [Concomitant]
     Indication: MIGRAINE
     Dosage: 10 MG UP TO 3 TIMES A DAY, AS NEEDED
  14. FLECTOR [Concomitant]
     Indication: PRODUCT USED FOR UNKNOWN INDICATION
     Dosage: PATCH 1.3% WILL QUIT WHEN SCRIPT RUNS OUT
  15. HYDROCORTISONE [Concomitant]
     Indication: PRODUCT USED FOR UNKNOWN INDICATION
     Dosage: 0.2% TWO TIMES DAILY AS NEEDED
  16. PROBIOTIC [Concomitant]
     Indication: PRODUCT USED FOR UNKNOWN INDICATION
     Dosage: 200 MG WITH A MEAL
  17. FENTANYL [Concomitant]
     Indication: PRODUCT USED FOR UNKNOWN INDICATION
     Dosage: PATCH

REACTIONS (6)
  - NEURALGIA [None]
  - PAIN [None]
  - GAIT DISTURBANCE [None]
  - INTERVERTEBRAL DISC PROTRUSION [None]
  - PAIN IN EXTREMITY [None]
  - MALAISE [None]
